FAERS Safety Report 5848558-X (Version None)
Quarter: 2008Q3

REPORT INFORMATION
  Report Type: 
  Country: None (occurrence: None)
  Receive Date: 20080815
  Receipt Date: 20080815
  Transmission Date: 20090109
  Serious: Yes (Other)
  Sender: FDA-Public Use
  Company Number: None

PATIENT
  Age: 9 Year
  Sex: Male
  Weight: 27.2158 kg

DRUGS (1)
  1. SINGULAIR [Suspect]
     Indication: ASTHMA
     Dosage: 5 MG ONCE DAILY PO, 2-3 WEEKS
     Route: 048
     Dates: start: 20080501, end: 20080517

REACTIONS (2)
  - OBSESSIVE-COMPULSIVE DISORDER [None]
  - THINKING ABNORMAL [None]
